FAERS Safety Report 4382481-5 (Version None)
Quarter: 2004Q2

REPORT INFORMATION
  Report Type: 
  Country: None (occurrence: None)
  Receive Date: 20040617
  Receipt Date: 20040609
  Transmission Date: 20050107
  Serious: Yes (Life-Threatening, Hospitalization)
  Sender: FDA-Public Use
  Company Number: GB-JNJFOC-20040603298

PATIENT
  Age: 7 Year
  Sex: Female
  Weight: 21.7 kg

DRUGS (3)
  1. IBUPROFEN [Suspect]
     Indication: PYREXIA
     Dosage: 100 MG, 4 IN 2 DAY, ORAL
     Route: 048
     Dates: start: 20040518, end: 20040519
  2. IBUPROFEN [Suspect]
     Indication: TONSILLITIS
     Dosage: 100 MG, 4 IN 2 DAY, ORAL
     Route: 048
     Dates: start: 20040518, end: 20040519
  3. PENICILLIN V [Concomitant]

REACTIONS (7)
  - BLOOD SODIUM DECREASED [None]
  - FEEDING DISORDER [None]
  - IRRITABILITY [None]
  - NEPHRITIS INTERSTITIAL [None]
  - PYREXIA [None]
  - RENAL FAILURE ACUTE [None]
  - STOMATITIS [None]
